FAERS Safety Report 18961617 (Version 8)
Quarter: 2021Q2

REPORT INFORMATION
  Report Type: Report from Study
  Country: CA (occurrence: CA)
  Receive Date: 20210302
  Receipt Date: 20210618
  Transmission Date: 20210717
  Serious: Yes (Hospitalization)
  Sender: FDA-Public Use
  Company Number: CA-BIOGEN-2019BI00682448

PATIENT
  Age: 52 Year
  Sex: Female

DRUGS (3)
  1. TYSABRI [Suspect]
     Active Substance: NATALIZUMAB
     Indication: RELAPSING-REMITTING MULTIPLE SCLEROSIS
     Dosage: INFUSED OVER 1 HOUR
     Route: 050
     Dates: start: 20190104
  2. TYSABRI [Suspect]
     Active Substance: NATALIZUMAB
     Dosage: INFUSED OVER 1 HOUR
     Route: 050
     Dates: start: 20190104
  3. TYSABRI [Suspect]
     Active Substance: NATALIZUMAB
     Dosage: INFUSED OVER 1 HOUR
     Route: 050
     Dates: start: 20190104

REACTIONS (38)
  - Secondary progressive multiple sclerosis [Unknown]
  - Muscular weakness [Unknown]
  - Memory impairment [Unknown]
  - Malaise [Recovered/Resolved]
  - Hypoaesthesia oral [Unknown]
  - Mobility decreased [Unknown]
  - Muscle twitching [Unknown]
  - Therapeutic product effect decreased [Unknown]
  - Feeling abnormal [Unknown]
  - Amnesia [Not Recovered/Not Resolved]
  - Electric shock sensation [Unknown]
  - Hypoaesthesia [Unknown]
  - Cystitis [Unknown]
  - Uhthoff^s phenomenon [Unknown]
  - Fall [Recovered/Resolved]
  - General physical health deterioration [Unknown]
  - Balance disorder [Unknown]
  - Somnolence [Unknown]
  - Motor dysfunction [Unknown]
  - Osteoarthritis [Unknown]
  - Musculoskeletal disorder [Unknown]
  - Dysuria [Recovered/Resolved]
  - Headache [Not Recovered/Not Resolved]
  - Multiple sclerosis relapse [Not Recovered/Not Resolved]
  - Back pain [Not Recovered/Not Resolved]
  - Pain in extremity [Unknown]
  - Dysphonia [Unknown]
  - Musculoskeletal stiffness [Unknown]
  - Fatigue [Unknown]
  - Gait disturbance [Unknown]
  - Head injury [Unknown]
  - Pain [Unknown]
  - Asthenia [Unknown]
  - Urinary tract infection [Unknown]
  - Hypersomnia [Unknown]
  - Emotional distress [Unknown]
  - Gait inability [Unknown]
  - Posture abnormal [Unknown]

NARRATIVE: CASE EVENT DATE: 20190104
